FAERS Safety Report 17442050 (Version 1)
Quarter: 2020Q1

REPORT INFORMATION
  Report Type: Spontaneous
  Country: TW (occurrence: TW)
  Receive Date: 20200220
  Receipt Date: 20200220
  Transmission Date: 20200409
  Serious: Yes (Other)
  Sender: FDA-Public Use
  Company Number: TW-PFIZER INC-2020069748

PATIENT
  Age: 62 Year
  Sex: Female

DRUGS (13)
  1. CELEBREX [Concomitant]
     Active Substance: CELECOXIB
     Indication: PAIN IN EXTREMITY
     Dosage: UNK, 2X/DAY
  2. SOLACON [Concomitant]
     Dosage: 20 MG, 2X/DAY (BID)
     Route: 048
  3. IBRANCE [Suspect]
     Active Substance: PALBOCICLIB
     Indication: BREAST CANCER FEMALE
     Dosage: 125 MG, DAILY (EVERY MORNING)
     Route: 048
     Dates: start: 202001
  4. MEI TAN [Concomitant]
     Dosage: 25 MG, AS NEEDED (3X/DAY TID)
     Route: 048
  5. UFORMIN [Concomitant]
     Dosage: 500 MG, 2X/DAY
     Route: 048
  6. AROMASIN [Suspect]
     Active Substance: EXEMESTANE
     Indication: BREAST CANCER FEMALE
     Dosage: 25 MG, DAILY
     Route: 048
  7. LIPITOR [Concomitant]
     Active Substance: ATORVASTATIN CALCIUM
     Dosage: 20 MG, DAILY (QD)
     Route: 048
  8. CELEBREX [Concomitant]
     Active Substance: CELECOXIB
     Indication: PAIN
  9. TRACETON [Concomitant]
     Indication: PAIN MANAGEMENT
     Dosage: 1 DF, 3X/DAY (37.5/325MG, 1 TABLET TID)
     Route: 048
  10. ULTRACET [Concomitant]
     Active Substance: ACETAMINOPHEN\TRAMADOL HYDROCHLORIDE
     Indication: PAIN
  11. ULTRACET [Concomitant]
     Active Substance: ACETAMINOPHEN\TRAMADOL HYDROCHLORIDE
     Indication: PAIN IN EXTREMITY
     Dosage: UNK
  12. SOLAXIN [CHLORZOXAZONE] [Concomitant]
     Indication: MUSCLE RELAXANT THERAPY
     Dosage: UNK
  13. EURODIN [ESTAZOLAM] [Concomitant]
     Dosage: 2 MG, 1X/DAY HS (AT BEDTIME)
     Route: 048

REACTIONS (4)
  - Hyperlipidaemia [Unknown]
  - Diabetes mellitus [Unknown]
  - Oedema peripheral [Unknown]
  - Neuralgia [Unknown]
